FAERS Safety Report 4471457-5 (Version None)
Quarter: 2004Q4

REPORT INFORMATION
  Report Type: 
  Country: None (occurrence: None)
  Receive Date: 20041012
  Receipt Date: 20041005
  Transmission Date: 20050328
  Serious: Yes (Hospitalization, Disabling, Other)
  Sender: FDA-Public Use
  Company Number: 200417602US

PATIENT
  Sex: Female

DRUGS (2)
  1. TAXOTERE [Suspect]
     Indication: BREAST CANCER
     Dosage: DOSE: NOT PROVIDED
     Dates: start: 20040101, end: 20040206
  2. UNKNOWN DRUG [Concomitant]
     Dosage: DOSE: NOT PROVIDED

REACTIONS (14)
  - ABASIA [None]
  - ALOPECIA [None]
  - CARDIAC DISORDER [None]
  - EYE DISCHARGE [None]
  - EYE REDNESS [None]
  - FATIGUE [None]
  - FEELING COLD [None]
  - LACRIMATION INCREASED [None]
  - MACULOPATHY [None]
  - NAIL DISORDER [None]
  - OEDEMA [None]
  - PULMONARY OEDEMA [None]
  - VISUAL ACUITY REDUCED [None]
  - VISUAL DISTURBANCE [None]
